FAERS Safety Report 9097311 (Version 1)
Quarter: 2013Q1

REPORT INFORMATION
  Report Type: Spontaneous
  Country: FR (occurrence: FR)
  Receive Date: 20130212
  Receipt Date: 20130212
  Transmission Date: 20140127
  Serious: Yes (Other)
  Sender: FDA-Public Use
  Company Number: FR-COVIDIEN/TYCO HEALTHCARE/MALLINCKRODT-T201300811

PATIENT
  Age: 8 Month
  Sex: Male

DRUGS (1)
  1. FENTANYL TRANSDERMAL SYSTEM [Suspect]
     Dosage: UNK
     Route: 003

REACTIONS (5)
  - Accidental poisoning [Unknown]
  - Accidental exposure to product [Unknown]
  - Loss of consciousness [Unknown]
  - Cyanosis [Unknown]
  - Somnolence [Recovered/Resolved]
